FAERS Safety Report 5887294-0 (Version None)
Quarter: 2008Q3

REPORT INFORMATION
  Report Type: 
  Country: None (occurrence: None)
  Receive Date: 20080915
  Receipt Date: 20080829
  Transmission Date: 20090109
  Serious: Yes (Hospitalization)
  Sender: FDA-Public Use
  Company Number: 2008AL010184

PATIENT
  Age: 78 Year
  Sex: Female
  Weight: 56.6996 kg

DRUGS (9)
  1. DIGOXIN [Suspect]
     Indication: HEART RATE IRREGULAR
     Dosage: 0.25/0.125MG, QOD, PO
     Route: 048
  2. COUMADIN [Concomitant]
  3. SYNTHROID [Concomitant]
  4. OMEPROZOLE [Concomitant]
  5. EVISTA [Concomitant]
  6. VISION [Concomitant]
  7. FORMULA [Concomitant]
  8. CALCIUM GLUCONATE [Concomitant]
  9. TYLENOL (CAPLET) [Concomitant]

REACTIONS (5)
  - CARDIOACTIVE DRUG LEVEL INCREASED [None]
  - FEELING ABNORMAL [None]
  - LOSS OF CONSCIOUSNESS [None]
  - NECK PAIN [None]
  - VISUAL IMPAIRMENT [None]
